FAERS Safety Report 25121252 (Version 2)
Quarter: 2025Q2

REPORT INFORMATION
  Report Type: Spontaneous
  Country: PR (occurrence: PR)
  Receive Date: 20250326
  Receipt Date: 20250529
  Transmission Date: 20250717
  Serious: Yes (Other)
  Sender: BRISTOL-MYERS SQUIBB COMPANY
  Company Number: PR-BRISTOL-MYERS SQUIBB COMPANY-2025-040494

PATIENT
  Age: 66 Year
  Sex: Male
  Weight: 76.2 kg

DRUGS (6)
  1. POMALYST [Suspect]
     Active Substance: POMALIDOMIDE
     Indication: Plasma cell myeloma
     Route: 048
     Dates: start: 202305
  2. DARZALEX FASPRO [DARATUMUMAB;HYALURONIDASE FIHJ] [Concomitant]
     Indication: Plasma cell myeloma
     Route: 058
     Dates: start: 202305
  3. DARZALEX FASPRO [DARATUMUMAB;HYALURONIDASE FIHJ] [Concomitant]
  4. DEXAMETHASONE [Concomitant]
     Active Substance: DEXAMETHASONE
     Indication: Plasma cell myeloma
     Route: 048
  5. CIPROFLOXACIN [Concomitant]
     Active Substance: CIPROFLOXACIN
     Indication: Prostatitis
     Route: 048
  6. UBIQUINOL [Concomitant]
     Active Substance: UBIQUINOL
     Indication: Product used for unknown indication
     Route: 048

REACTIONS (7)
  - Blood urine present [Recovering/Resolving]
  - Pain [Recovering/Resolving]
  - Haemorrhage urinary tract [Recovering/Resolving]
  - Prostatic specific antigen increased [Recovering/Resolving]
  - Prostatitis [Recovering/Resolving]
  - Rash [Unknown]
  - Skin exfoliation [Unknown]

NARRATIVE: CASE EVENT DATE: 20250301
